FAERS Safety Report 8536279-4 (Version None)
Quarter: 2012Q3

REPORT INFORMATION
  Report Type: 
  Country: None (occurrence: None)
  Receive Date: 20120725
  Receipt Date: 20120719
  Transmission Date: 20120928
  Serious: Yes (Hospitalization)
  Sender: FDA-Public Use
  Company Number: US-JNJFOC-20120707828

PATIENT
  Sex: Male
  Weight: 54.4 kg

DRUGS (6)
  1. REMICADE [Suspect]
     Indication: CROHN'S DISEASE
     Route: 042
  2. VITAMIN D [Concomitant]
  3. FOLIC ACID [Concomitant]
  4. REMICADE [Suspect]
     Route: 042
     Dates: start: 20080514, end: 20081224
  5. DOXYCYCLINE [Concomitant]
  6. METHOTREXATE [Concomitant]

REACTIONS (1)
  - ILEUS [None]
